FAERS Safety Report 5363221-X (Version None)
Quarter: 2007Q2

REPORT INFORMATION
  Report Type: 
  Country: None (occurrence: None)
  Receive Date: 20070618
  Receipt Date: 20070618
  Transmission Date: 20071010
  Serious: Yes (Death)
  Sender: FDA-Public Use
  Company Number: None

PATIENT
  Sex: Female
  Weight: 81.6475 kg

DRUGS (9)
  1. AVELOX [Suspect]
     Indication: BRONCHITIS
     Dosage: 400MG DAILY ORAL
     Route: 048
     Dates: start: 20070413
  2. AVELOX [Suspect]
     Indication: SINUSITIS
     Dosage: 400MG DAILY ORAL
     Route: 048
     Dates: start: 20070413
  3. AVELOX [Suspect]
     Indication: BRONCHITIS
     Dosage: 400MG DAILY ORAL
     Route: 048
     Dates: start: 20070414
  4. AVELOX [Suspect]
     Indication: SINUSITIS
     Dosage: 400MG DAILY ORAL
     Route: 048
     Dates: start: 20070414
  5. CODICLEAR DH [Suspect]
     Indication: COUGH
     Dosage: 1-2 TEASPOONS EVERY 6 HOURS ORAL
     Route: 048
     Dates: start: 20070413
  6. CODICLEAR DH [Suspect]
     Indication: COUGH
     Dosage: 1-2 TEASPOONS EVERY 6 HOURS ORAL
     Route: 048
     Dates: start: 20070414
  7. ALBUTEROL [Concomitant]
  8. TYLENOL [Concomitant]
  9. TESSALON [Concomitant]

REACTIONS (1)
  - DEATH [None]
